FAERS Safety Report 4293274-1 (Version None)
Quarter: 2004Q1

REPORT INFORMATION
  Report Type: 
  Country: None (occurrence: None)
  Receive Date: 20040210
  Receipt Date: 20040210
  Transmission Date: 20041129
  Serious: Yes (Hospitalization)
  Sender: FDA-Public Use
  Company Number: None

PATIENT
  Age: 66 Year
  Sex: Male
  Weight: 98.7 kg

DRUGS (27)
  1. RIBAVIRIN [Suspect]
     Indication: HEPATITIS C
     Dosage: 600 MG PO Q AM AND 400 MG PO Q PM
     Route: 048
     Dates: start: 20031211, end: 20031218
  2. ALBUMIN (HUMAN) [Concomitant]
  3. CEFAZOLIN [Concomitant]
  4. DALTEPARIN [Concomitant]
  5. DEXTROSE [Concomitant]
  6. MORPHINE [Concomitant]
  7. BUPIVACAINE [Concomitant]
  8. SODIUM CHLORIDE [Concomitant]
  9. ALBUTEROL [Concomitant]
  10. BISACODYL SUPP [Concomitant]
  11. CLONIDINE [Concomitant]
  12. DILTIAZEM HCL [Concomitant]
  13. DIPHENHYDRAMINE HCL [Concomitant]
  14. DOCUSATE SODIUM [Concomitant]
  15. HYDRODROXYPROPYL METH CELL [Concomitant]
  16. IBUPROFEN [Concomitant]
  17. LATANOPROST SOLN [Concomitant]
  18. LEVOFLOXACIN [Concomitant]
  19. METOCLOPRAMIDE [Concomitant]
  20. MILK OF MAGNESIA SUSP [Concomitant]
  21. NALOXONE [Concomitant]
  22. HYDROCHLORIDE [Concomitant]
  23. ONDANSETRON [Concomitant]
  24. OXYCODONE AND ACETAMINOPHEN [Concomitant]
  25. PROCHLORPERAZINE [Concomitant]
  26. TERAZOSIN HCL [Concomitant]
  27. TIMOLOL MALEATE [Concomitant]

REACTIONS (6)
  - ANAEMIA [None]
  - DEEP VEIN THROMBOSIS [None]
  - DRUG INEFFECTIVE [None]
  - HAEMATOMA [None]
  - MEDICATION ERROR [None]
  - PYREXIA [None]
